FAERS Safety Report 4574804-9 (Version None)
Quarter: 2005Q1

REPORT INFORMATION
  Report Type: 
  Country: None (occurrence: None)
  Receive Date: 20050208
  Receipt Date: 20040702
  Transmission Date: 20050727
  Serious: No
  Sender: FDA-Public Use
  Company Number: US-GLAXOSMITHKLINE-A0516920A

PATIENT
  Age: 16 Year
  Sex: Female
  Weight: 54.5 kg

DRUGS (1)
  1. PAXIL CR [Suspect]
     Dosage: 12.5MG PER DAY
     Route: 048
     Dates: start: 20030813

REACTIONS (4)
  - DEPRESSED MOOD [None]
  - DYSPHORIA [None]
  - IRRITABILITY [None]
  - TEARFULNESS [None]
